FAERS Safety Report 21919584 (Version 1)
Quarter: 2023Q1

REPORT INFORMATION
  Report Type: Spontaneous
  Country: FR (occurrence: FR)
  Receive Date: 20230127
  Receipt Date: 20230127
  Transmission Date: 20230417
  Serious: Yes (Other)
  Sender: FDA-Public Use
  Company Number: FR-AFSSAPS-PO2023000006

PATIENT
  Age: 28 Year
  Sex: Female
  Weight: 80 kg

DRUGS (5)
  1. MORPHINE [Suspect]
     Active Substance: MORPHINE
     Indication: Pain
     Dosage: 60 MILLIGRAM, QD
     Route: 058
     Dates: start: 20220608, end: 20220614
  2. AMITRIPTYLINE [Suspect]
     Active Substance: AMITRIPTYLINE
     Indication: Pain
     Dosage: 25 MILLIGRAM
     Route: 048
     Dates: start: 20220611, end: 20220614
  3. KETOPROFEN [Suspect]
     Active Substance: KETOPROFEN
     Indication: Pain
     Dosage: 200 MILLIGRAM, QD
     Route: 040
     Dates: start: 20220608, end: 20220613
  4. DOLIPRANE [Suspect]
     Active Substance: ACETAMINOPHEN
     Indication: Pain
     Dosage: 1 GRAM, QID
     Route: 048
     Dates: start: 20220608, end: 20220613
  5. LYRICA [Suspect]
     Active Substance: PREGABALIN
     Indication: Pain
     Dosage: 75 MILLIGRAM, BID
     Route: 048
     Dates: start: 20220608, end: 20220612

REACTIONS (1)
  - Hepatocellular injury [Recovering/Resolving]

NARRATIVE: CASE EVENT DATE: 20220613
